FAERS Safety Report 12869162 (Version 1)
Quarter: 2016Q4

REPORT INFORMATION
  Report Type: Spontaneous
  Country: US (occurrence: US)
  Receive Date: 20161021
  Receipt Date: 20161021
  Transmission Date: 20170207
  Serious: Yes (Other)
  Sender: FDA-Public Use
  Company Number: US-PFIZER INC-2016489200

PATIENT
  Age: 64 Year
  Sex: Male

DRUGS (2)
  1. LYRICA [Suspect]
     Active Substance: PREGABALIN
     Indication: DIABETIC NEUROPATHY
     Dosage: LOW DOSE
  2. LYRICA [Suspect]
     Active Substance: PREGABALIN
     Indication: PANIC ATTACK
     Dosage: 300 MG, 2X/DAY; 300MG CAPSULE, ONE IN THE MORNING AND ONE AT NIGHT
     Dates: end: 201609

REACTIONS (4)
  - Suicidal ideation [Unknown]
  - Dyspnoea [Not Recovered/Not Resolved]
  - Panic attack [Not Recovered/Not Resolved]
  - Feeling of body temperature change [Not Recovered/Not Resolved]

NARRATIVE: CASE EVENT DATE: 2015
